FAERS Safety Report 8090966-3 (Version None)
Quarter: 2012Q1

REPORT INFORMATION
  Report Type: 
  Country: None (occurrence: None)
  Receive Date: 20120128
  Receipt Date: 20110729
  Transmission Date: 20120608
  Serious: No
  Sender: FDA-Public Use
  Company Number: US-ABBOTT-11P-163-0842969-00

PATIENT
  Age: 55 Year
  Sex: Male

DRUGS (7)
  1. OMNICUR [Concomitant]
     Indication: PRODUCT USED FOR UNKNOWN INDICATION
  2. HUMIRA [Suspect]
     Indication: PSORIATIC ARTHROPATHY
     Dates: start: 20110729
  3. VITAMIN D [Concomitant]
     Indication: VITAMIN SUPPLEMENTATION
     Dosage: MONDAY, WEDNESDAY, FRIDAY
  4. AVAPRO [Concomitant]
     Indication: PRODUCT USED FOR UNKNOWN INDICATION
  5. TRICOR [Concomitant]
     Indication: PRODUCT USED FOR UNKNOWN INDICATION
  6. GLUCOSAMINE + CHONDROITIN [Concomitant]
     Indication: PRODUCT USED FOR UNKNOWN INDICATION
     Dosage: 1 DAILY (OSTEOSPORT)
  7. MELOXICAM [Concomitant]
     Indication: PRODUCT USED FOR UNKNOWN INDICATION
     Dosage: 7.5, TWICE DAILY

REACTIONS (2)
  - INJECTION SITE PAIN [None]
  - INJECTION SITE NODULE [None]
